FAERS Safety Report 11020959 (Version 2)
Quarter: 2015Q2

REPORT INFORMATION
  Report Type: Spontaneous
  Country: US (occurrence: US)
  Receive Date: 20150413
  Receipt Date: 20150514
  Transmission Date: 20150821
  Serious: No
  Sender: FDA-Public Use
  Company Number: US-ROXANE LABORATORIES, INC.-2015-RO-00633RO

PATIENT
  Sex: Female

DRUGS (1)
  1. BUTORPHANOL [Suspect]
     Active Substance: BUTORPHANOL
     Indication: MIGRAINE
     Route: 045

REACTIONS (2)
  - Product quality issue [Not Recovered/Not Resolved]
  - Drug ineffective [Not Recovered/Not Resolved]
